FAERS Safety Report 17358717 (Version 1)
Quarter: 2020Q1

REPORT INFORMATION
  Report Type: Spontaneous
  Country: SE (occurrence: SE)
  Receive Date: 20200201
  Receipt Date: 20200201
  Transmission Date: 20200409
  Serious: Yes (Hospitalization)
  Sender: FDA-Public Use
  Company Number: NVSC2020SE021257

PATIENT
  Age: 20 Year
  Sex: Female

DRUGS (5)
  1. THERALEN [Suspect]
     Active Substance: TRIMEPRAZINE
     Indication: PRODUCT USED FOR UNKNOWN INDICATION
     Dosage: 5 ML
     Route: 048
     Dates: start: 20181213
  2. ALVEDON [Suspect]
     Active Substance: ACETAMINOPHEN
     Indication: PRODUCT USED FOR UNKNOWN INDICATION
     Dosage: 6 ALVEDON 500 MG.
     Route: 048
     Dates: start: 20181213
  3. QUETIAPINE. [Suspect]
     Active Substance: QUETIAPINE
     Indication: PRODUCT USED FOR UNKNOWN INDICATION
     Dosage: 600 MG
     Route: 048
     Dates: start: 20181213
  4. MIRTAZAPINE. [Suspect]
     Active Substance: MIRTAZAPINE
     Indication: PRODUCT USED FOR UNKNOWN INDICATION
     Dosage: 20 STYCKEN MIRTAZAPINE VET EJ STYRKAN. TROR 15 MG
     Route: 048
     Dates: start: 20181213
  5. LERGIGAN (PROMETHAZINE HYDROCHLORIDE) [Suspect]
     Active Substance: PROMETHAZINE HYDROCHLORIDE
     Indication: PRODUCT USED FOR UNKNOWN INDICATION
     Dosage: LERGIGAN 15 STYCKEN 25 MG
     Route: 048
     Dates: start: 20181213

REACTIONS (8)
  - Intentional self-injury [Unknown]
  - Abdominal pain [Unknown]
  - Formication [Unknown]
  - Akathisia [Unknown]
  - Intentional overdose [Unknown]
  - Chest discomfort [Unknown]
  - Tachycardia [Unknown]
  - Fatigue [Unknown]

NARRATIVE: CASE EVENT DATE: 20181213
